FAERS Safety Report 8821173 (Version 2)
Quarter: 2012Q4

REPORT INFORMATION
  Report Type: Report from Study
  Country: HU (occurrence: HU)
  Receive Date: 20121002
  Receipt Date: 20121108
  Transmission Date: 20130627
  Serious: Yes (Other)
  Sender: FDA-Public Use
  Company Number: HU-ROCHE-1098009

PATIENT
  Sex: Male

DRUGS (2)
  1. CAPECITABINE [Suspect]
     Indication: PRODUCT USED FOR UNKNOWN INDICATION
     Route: 048
     Dates: start: 20120724
  2. CISPLATIN [Concomitant]

REACTIONS (4)
  - Dysuria [Recovered/Resolved]
  - Abdominal hernia [Unknown]
  - Asthenia [Unknown]
  - Nausea [Unknown]
